FAERS Safety Report 12287080 (Version 6)
Quarter: 2016Q3

REPORT INFORMATION
  Report Type: Report from Study
  Country: US (occurrence: US)
  Receive Date: 20160420
  Receipt Date: 20160705
  Transmission Date: 20161109
  Serious: Yes (Other)
  Sender: FDA-Public Use
  Company Number: US-JNJFOC-20160400200

PATIENT
  Age: 72 Year
  Sex: Female

DRUGS (6)
  1. IMBRUVICA [Suspect]
     Active Substance: IBRUTINIB
     Indication: NEOPLASM MALIGNANT
     Route: 048
     Dates: start: 20160216, end: 2016
  2. HYDROCODONE [Concomitant]
     Active Substance: HYDROCODONE
  3. IMBRUVICA [Suspect]
     Active Substance: IBRUTINIB
     Indication: CHRONIC LYMPHOCYTIC LEUKAEMIA
     Route: 048
     Dates: start: 2016
  4. IMBRUVICA [Suspect]
     Active Substance: IBRUTINIB
     Indication: NEOPLASM MALIGNANT
     Route: 048
     Dates: start: 2016
  5. IMBRUVICA [Suspect]
     Active Substance: IBRUTINIB
     Indication: CHRONIC LYMPHOCYTIC LEUKAEMIA
     Route: 048
     Dates: start: 20160216, end: 2016
  6. TRAMADOL. [Concomitant]
     Active Substance: TRAMADOL

REACTIONS (23)
  - Skin lesion [Unknown]
  - Product use issue [Not Recovered/Not Resolved]
  - Back pain [Unknown]
  - Weight decreased [Unknown]
  - Asthenia [Unknown]
  - Pain in extremity [Unknown]
  - Drug dose omission [Recovered/Resolved]
  - Decreased appetite [Recovering/Resolving]
  - Red blood cell count decreased [Unknown]
  - Loss of consciousness [Recovering/Resolving]
  - Head injury [Unknown]
  - Intestinal obstruction [Unknown]
  - Localised infection [Unknown]
  - Off label use [Not Recovered/Not Resolved]
  - Blister [Recovering/Resolving]
  - Blood blister [Unknown]
  - Fall [Recovering/Resolving]
  - Pain [Recovering/Resolving]
  - Confusional state [Unknown]
  - White blood cell count increased [Unknown]
  - Dysgeusia [Unknown]
  - Memory impairment [Unknown]
  - Nausea [Unknown]

NARRATIVE: CASE EVENT DATE: 2016
